FAERS Safety Report 24953897 (Version 1)
Quarter: 2025Q1

REPORT INFORMATION
  Report Type: Spontaneous
  Country: US (occurrence: US)
  Receive Date: 20250211
  Receipt Date: 20250211
  Transmission Date: 20250409
  Serious: No
  Sender: DR REDDYS
  Company Number: US-DRL-USA-USA/2025/01/001616

PATIENT
  Age: 60 Year
  Sex: Female

DRUGS (6)
  1. DOXYCYCLINE [Suspect]
     Active Substance: DOXYCYCLINE
     Indication: Nocardiosis
  2. SULFAMETHOXAZOLE\TRIMETHOPRIM [Suspect]
     Active Substance: SULFAMETHOXAZOLE\TRIMETHOPRIM
     Indication: Nocardiosis
  3. TEMODAR [Concomitant]
     Active Substance: TEMOZOLOMIDE
     Indication: Glioblastoma multiforme
  4. ACCUTANE [Concomitant]
     Active Substance: ISOTRETINOIN
     Indication: Glioblastoma multiforme
  5. PAZOPANIB [Concomitant]
     Active Substance: PAZOPANIB
     Indication: Glioblastoma multiforme
  6. LAPATINIB [Concomitant]
     Active Substance: LAPATINIB
     Indication: Glioblastoma multiforme

REACTIONS (1)
  - Platelet count decreased [Unknown]
